FAERS Safety Report 11749203 (Version 4)
Quarter: 2016Q2

REPORT INFORMATION
  Report Type: Spontaneous
  Country: US (occurrence: US)
  Receive Date: 20151118
  Receipt Date: 20160524
  Transmission Date: 20160815
  Serious: Yes (Other)
  Sender: FDA-Public Use
  Company Number: US-BEH-2015055786

PATIENT
  Sex: Female
  Weight: 58 kg

DRUGS (26)
  1. HIZENTRA [Suspect]
     Active Substance: HUMAN IMMUNOGLOBULIN G
     Indication: HYPER IGM SYNDROME
     Dosage: 4 GM VIALS
     Route: 058
  2. BAYER ASPIRIN [Concomitant]
     Active Substance: ASPIRIN
  3. FAMOTIDINE. [Concomitant]
     Active Substance: FAMOTIDINE
  4. VITAMIN C [Concomitant]
     Active Substance: ASCORBIC ACID
  5. HIZENTRA [Suspect]
     Active Substance: HUMAN IMMUNOGLOBULIN G
     Indication: IMMUNODEFICIENCY COMMON VARIABLE
     Dosage: 4 GM 20 ML VIALS
     Route: 058
  6. IPRATROPIUM-ALBUTEROL [Concomitant]
     Active Substance: ALBUTEROL\IPRATROPIUM
  7. ACETAMINOPHEN\HYDROCODONE BITARTRATE [Concomitant]
     Active Substance: ACETAMINOPHEN\HYDROCODONE BITARTRATE
  8. DIPHENHYDRAMINE. [Concomitant]
     Active Substance: DIPHENHYDRAMINE
  9. AMBIEN [Concomitant]
     Active Substance: ZOLPIDEM TARTRATE
  10. BACTRIM [Concomitant]
     Active Substance: SULFAMETHOXAZOLE\TRIMETHOPRIM
  11. ECHINACEA [Concomitant]
     Active Substance: ECHINACEA, UNSPECIFIED
  12. DICLOFENAC SODIUM. [Concomitant]
     Active Substance: DICLOFENAC SODIUM
  13. CALCIUM + VITAMIN D [Concomitant]
     Active Substance: CALCIUM\VITAMIN D
  14. GLUCOSAMINE-CHONDROITIN [Concomitant]
     Active Substance: CHONDROITIN SULFATE (BOVINE)\GLUCOSAMINE SULFATE
  15. SAVELLA [Concomitant]
     Active Substance: MILNACIPRAN HYDROCHLORIDE
  16. COMPLETE MULTIVITAMINS [Concomitant]
  17. LEXAPRO [Concomitant]
     Active Substance: ESCITALOPRAM OXALATE
  18. TIZANIDINE. [Concomitant]
     Active Substance: TIZANIDINE
  19. HIZENTRA [Suspect]
     Active Substance: HUMAN IMMUNOGLOBULIN G
     Route: 058
  20. ACETAMINOPHEN. [Concomitant]
     Active Substance: ACETAMINOPHEN
  21. ZINC [Concomitant]
     Active Substance: ZINC\ZINC CHLORIDE
  22. EPIPEN [Concomitant]
     Active Substance: EPINEPHRINE
  23. METHADONE [Concomitant]
     Active Substance: METHADONE HYDROCHLORIDE
  24. CLONAZEPAM. [Concomitant]
     Active Substance: CLONAZEPAM
  25. GABAPENTIN. [Concomitant]
     Active Substance: GABAPENTIN
  26. ZOLPIDEM [Concomitant]
     Active Substance: ZOLPIDEM\ZOLPIDEM TARTRATE

REACTIONS (4)
  - Vomiting [Unknown]
  - Cestode infection [Unknown]
  - Infection parasitic [Unknown]
  - Sinusitis [Unknown]
